FAERS Safety Report 10492250 (Version 2)
Quarter: 2015Q2

REPORT INFORMATION
  Report Type: Spontaneous
  Country: US (occurrence: US)
  Receive Date: 20141002
  Receipt Date: 20150602
  Transmission Date: 20150821
  Serious: Yes (Other)
  Sender: FDA-Public Use
  Company Number: US-GLAXOSMITHKLINE-A1067749A

PATIENT
  Age: 51 Year
  Sex: Female

DRUGS (2)
  1. VENTOLIN HFA [Suspect]
     Active Substance: ALBUTEROL SULFATE
     Indication: ASTHMA
     Dosage: UNK, U
     Route: 065
     Dates: start: 1985
  2. ADVAIR HFA [Suspect]
     Active Substance: FLUTICASONE PROPIONATE\SALMETEROL XINAFOATE
     Indication: ASTHMA
     Dosage: UNK, U
     Route: 065
     Dates: start: 1985

REACTIONS (6)
  - Osteoporosis [Not Recovered/Not Resolved]
  - Impaired work ability [Unknown]
  - Ill-defined disorder [Unknown]
  - Asthma [Unknown]
  - Drug ineffective [Unknown]
  - Spinal fracture [Unknown]

NARRATIVE: CASE EVENT DATE: 201505
